FAERS Safety Report 7022800-4 (Version None)
Quarter: 2010Q3

REPORT INFORMATION
  Report Type: 
  Country: None (occurrence: None)
  Receive Date: 20100930
  Receipt Date: 20100927
  Transmission Date: 20110219
  Serious: Yes (Death, Hospitalization)
  Sender: FDA-Public Use
  Company Number: A0884043A

PATIENT
  Sex: Female

DRUGS (1)
  1. AVANDIA [Suspect]
     Dosage: 4MG PER DAY
     Route: 048
     Dates: end: 20070101

REACTIONS (5)
  - BLINDNESS [None]
  - CARDIAC DISORDER [None]
  - DEATH [None]
  - HYPERTENSIVE HEART DISEASE [None]
  - RENAL FAILURE CHRONIC [None]
